FAERS Safety Report 24627711 (Version 1)
Quarter: 2024Q4

REPORT INFORMATION
  Report Type: Spontaneous
  Country: MY (occurrence: MY)
  Receive Date: 20241116
  Receipt Date: 20241116
  Transmission Date: 20250114
  Serious: Yes (Other)
  Sender: ALEXION PHARMACEUTICALS
  Company Number: MY-ASTRAZENECA-202411GLO008148MY

PATIENT
  Age: 43 Year

DRUGS (8)
  1. FASENRA [Suspect]
     Active Substance: BENRALIZUMAB
     Indication: Asthma
     Dosage: 30 MG EVERY 4 WEEKS
  2. FASENRA [Suspect]
     Active Substance: BENRALIZUMAB
     Dosage: 30 MG EVERY 4 WEEKS
  3. FASENRA [Suspect]
     Active Substance: BENRALIZUMAB
     Dosage: 30 MG EVERY 4 WEEKS
  4. FASENRA [Suspect]
     Active Substance: BENRALIZUMAB
     Dosage: 30 MG EVERY 4 WEEKS
  5. FASENRA [Suspect]
     Active Substance: BENRALIZUMAB
     Dosage: 30 MG EVERY 4 WEEKS
  6. FASENRA [Suspect]
     Active Substance: BENRALIZUMAB
     Dosage: 30 MG EVERY 4 WEEKS
  7. FASENRA [Suspect]
     Active Substance: BENRALIZUMAB
     Dosage: 30 MG EVERY 4 WEEKS
  8. FASENRA [Suspect]
     Active Substance: BENRALIZUMAB
     Dosage: 30 MG EVERY 4 WEEKS

REACTIONS (1)
  - Idiopathic intracranial hypertension [Recovering/Resolving]
